FAERS Safety Report 5725685-9 (Version None)
Quarter: 2008Q2

REPORT INFORMATION
  Report Type: 
  Country: None (occurrence: None)
  Receive Date: 20080429
  Receipt Date: 20080418
  Transmission Date: 20081010
  Serious: Yes (Hospitalization)
  Sender: FDA-Public Use
  Company Number: 100#08#2006-01387

PATIENT
  Age: 69 Year
  Sex: Female

DRUGS (9)
  1. WARFARIN SODIUM [Suspect]
     Indication: ATRIAL FIBRILLATION
     Dosage: 2 MG ONCE DAILY ORAL
     Route: 048
  2. CLARITHROMYCIN [Suspect]
     Indication: LOWER RESPIRATORY TRACT INFECTION
  3. COMBIVENT (IPRATROPIUM BROMIDE, SALBUTAMOL SULPHATE) [Concomitant]
  4. FOLIC ACID [Concomitant]
  5. LOPERAMIDE [Concomitant]
  6. PERINDOPRIL ERBUMINE [Concomitant]
  7. QUININE (QUININE) [Concomitant]
  8. SERETIDE (FLUTICASONE PROPIONATE, SALMETEROL XINAFOATE) [Concomitant]
  9. VITAMIN B12 (VITAMIN B SUBSTANCES) [Concomitant]

REACTIONS (4)
  - DRUG INTERACTION [None]
  - HAEMOGLOBIN DECREASED [None]
  - INTERNATIONAL NORMALISED RATIO INCREASED [None]
  - RETROPERITONEAL HAEMATOMA [None]
